FAERS Safety Report 6073888-9 (Version None)
Quarter: 2009Q1

REPORT INFORMATION
  Report Type: 
  Country: None (occurrence: None)
  Receive Date: 20090211
  Receipt Date: 20090202
  Transmission Date: 20090719
  Serious: Yes (Other)
  Sender: FDA-Public Use
  Company Number: PT-MERCK-0902PRT00001

PATIENT
  Age: 24 Month
  Sex: Female
  Weight: 12 kg

DRUGS (3)
  1. SINGULAIR [Suspect]
     Indication: ASTHMA
     Route: 048
     Dates: start: 20080601, end: 20080901
  2. SINGULAIR [Suspect]
     Route: 048
     Dates: start: 20080101
  3. ALBUTEROL [Concomitant]
     Indication: ASTHMATIC CRISIS
     Route: 065

REACTIONS (2)
  - GRANULOMA ANNULARE [None]
  - SKIN REACTION [None]
